FAERS Safety Report 9276716 (Version 1)
Quarter: 2013Q2

REPORT INFORMATION
  Report Type: Spontaneous
  Country: US (occurrence: US)
  Receive Date: 20130507
  Receipt Date: 20130507
  Transmission Date: 20140414
  Serious: Yes (Other)
  Sender: FDA-Public Use
  Company Number: US-ELI_LILLY_AND_COMPANY-US201304008879

PATIENT
  Sex: Male

DRUGS (1)
  1. HUMULIN NPH [Suspect]
     Indication: DIABETES MELLITUS
     Dosage: 120 U, QD
     Dates: start: 2010

REACTIONS (4)
  - Retinal haemorrhage [Unknown]
  - Visual acuity reduced [Unknown]
  - Asthenia [Unknown]
  - Blood glucose decreased [Unknown]
